FAERS Safety Report 4611352-1 (Version None)
Quarter: 2005Q1

REPORT INFORMATION
  Report Type: 
  Country: None (occurrence: None)
  Receive Date: 20050317
  Receipt Date: 20050131
  Transmission Date: 20050727
  Serious: Yes (Other)
  Sender: FDA-Public Use
  Company Number: US-BRISTOL-MYERS SQUIBB COMPANY-12853743

PATIENT
  Age: 66 Year
  Sex: Male

DRUGS (7)
  1. ERBITUX [Suspect]
     Indication: SQUAMOUS CELL CARCINOMA OF SKIN
     Dosage: LOAD DOSE (800 MG) 10-AUG-04, 24TH DOSE ON 31-JAN-2005
     Dates: start: 20040101
  2. NEURONTIN [Concomitant]
  3. MINIPRESS [Concomitant]
  4. LEXAPRO [Concomitant]
  5. VICODIN [Concomitant]
  6. GLUCOPHAGE [Concomitant]
  7. CELEBREX [Concomitant]

REACTIONS (6)
  - BLOOD GLUCOSE INCREASED [None]
  - BLOOD MAGNESIUM DECREASED [None]
  - BLOOD PRESSURE INADEQUATELY CONTROLLED [None]
  - DERMATITIS ACNEIFORM [None]
  - HYPERTRIGLYCERIDAEMIA [None]
  - WEIGHT INCREASED [None]
